FAERS Safety Report 5480047-7 (Version None)
Quarter: 2007Q4

REPORT INFORMATION
  Report Type: 
  Country: None (occurrence: None)
  Receive Date: 20071008
  Receipt Date: 20070926
  Transmission Date: 20080405
  Serious: Yes (Other)
  Sender: FDA-Public Use
  Company Number: CA-PFIZER INC-2007079806

PATIENT
  Sex: Female

DRUGS (2)
  1. CHAMPIX [Suspect]
     Indication: SMOKING CESSATION THERAPY
     Route: 048
     Dates: start: 20070903, end: 20070919
  2. ANDRIOL [Concomitant]

REACTIONS (3)
  - MYDRIASIS [None]
  - PHOTOPHOBIA [None]
  - VISION BLURRED [None]
